FAERS Safety Report 11224795 (Version 1)
Quarter: 2015Q2

REPORT INFORMATION
  Report Type: Report from Study
  Country: NL (occurrence: NL)
  Receive Date: 20150629
  Receipt Date: 20150629
  Transmission Date: 20150821
  Serious: Yes (Other)
  Sender: FDA-Public Use
  Company Number: NL-ASTELLAS-2015US022415

PATIENT

DRUGS (3)
  1. ERLOTINIB [Suspect]
     Active Substance: ERLOTINIB
     Indication: PANCREATIC CARCINOMA
     Route: 048
  2. GEMCITABINE [Suspect]
     Active Substance: GEMCITABINE\GEMCITABINE HYDROCHLORIDE
     Indication: PANCREATIC CARCINOMA
     Dosage: 1000 MG/M2, ON DAY 1, 8, AND 15 OF A 4 WEEK CYCLE
     Route: 042
  3. METFORMIN [Suspect]
     Active Substance: METFORMIN HYDROCHLORIDE
     Indication: PANCREATIC CARCINOMA
     Route: 048

REACTIONS (6)
  - Platelet count decreased [Unknown]
  - Oedema [Unknown]
  - Haemoglobin decreased [Unknown]
  - Neutropenia [Unknown]
  - Pulmonary embolism [Unknown]
  - Alopecia [Unknown]
